FAERS Safety Report 17148694 (Version 1)
Quarter: 2019Q4

REPORT INFORMATION
  Report Type: Spontaneous
  Country: DE (occurrence: DE)
  Receive Date: 20191213
  Receipt Date: 20191213
  Transmission Date: 20200122
  Serious: Yes (Other)
  Sender: FDA-Public Use
  Company Number: DE-ROCHE-2496648

PATIENT
  Age: 53 Year
  Sex: Female

DRUGS (6)
  1. COBIMETINIB. [Suspect]
     Active Substance: COBIMETINIB
     Indication: MALIGNANT MELANOMA
     Route: 065
  2. DABRAFENIB [Concomitant]
     Active Substance: DABRAFENIB
  3. TRAMETINIB [Concomitant]
     Active Substance: TRAMETINIB
  4. VEMURAFENIB. [Suspect]
     Active Substance: VEMURAFENIB
     Indication: MALIGNANT MELANOMA
     Route: 065
  5. COBIMETINIB. [Suspect]
     Active Substance: COBIMETINIB
     Indication: MALIGNANT MELANOMA
  6. VEMURAFENIB. [Suspect]
     Active Substance: VEMURAFENIB
     Indication: MALIGNANT MELANOMA

REACTIONS (7)
  - Genital erosion [Unknown]
  - Fatigue [Unknown]
  - Rash maculo-papular [Unknown]
  - Erythema multiforme [Unknown]
  - Pruritus [Unknown]
  - Oral disorder [Unknown]
  - Anal erosion [Unknown]
